FAERS Safety Report 4954921-1 (Version None)
Quarter: 2006Q1

REPORT INFORMATION
  Report Type: 
  Country: None (occurrence: None)
  Receive Date: 20060322
  Receipt Date: 20060308
  Transmission Date: 20060701
  Serious: Yes (Death, Life-Threatening, Hospitalization)
  Sender: FDA-Public Use
  Company Number: JP200601004095

PATIENT
  Age: 73 Year
  Sex: Male
  Weight: 44 kg

DRUGS (8)
  1. GEMZAR [Suspect]
     Indication: PLEURAL MESOTHELIOMA MALIGNANT
     Dosage: 1000 MG/M2, OTHER, INTRAVENOUS
     Route: 042
     Dates: start: 20050810, end: 20051109
  2. CISPLATIN [Concomitant]
  3. NASEA (RAMOSETRON HYDROCHLORIDE) [Concomitant]
  4. DEXAMETHASONE SODIUM PHOSPHATE [Concomitant]
  5. LASIX [Concomitant]
  6. NAUZELIN (DOMPERIDONE) SUPPOSITORY [Concomitant]
  7. MAGLAX /JPN/ (MAGNESIUM OXIDE) [Concomitant]
  8. ALUMINIUM HYDROXIDE W/MAGNESIUM HYDROXIDE (ALUMINIUM HYDROXIDE, MAGNES [Concomitant]

REACTIONS (5)
  - BLOOD LACTATE DEHYDROGENASE INCREASED [None]
  - LYMPHANGIOSIS CARCINOMATOSA [None]
  - MALIGNANT NEOPLASM PROGRESSION [None]
  - PNEUMONIA CHLAMYDIAL [None]
  - PNEUMONITIS [None]
